FAERS Safety Report 5071635-0 (Version None)
Quarter: 2006Q3

REPORT INFORMATION
  Report Type: 
  Country: None (occurrence: None)
  Receive Date: 20060804
  Receipt Date: 20060728
  Transmission Date: 20061208
  Serious: Yes (Life-Threatening)
  Sender: FDA-Public Use
  Company Number: JP-MERCK-0608USA00575

PATIENT
  Age: 63 Year
  Sex: Female

DRUGS (4)
  1. FOSAMAX [Suspect]
     Indication: OSTEOPOROSIS
     Route: 048
     Dates: end: 20060101
  2. ARAVA [Suspect]
     Indication: RHEUMATOID ARTHRITIS
     Route: 048
     Dates: end: 20060101
  3. TAKEPRON [Concomitant]
     Route: 048
  4. PREDONINE [Concomitant]
     Route: 065

REACTIONS (2)
  - BLADDER CANCER [None]
  - TRANSITIONAL CELL CANCER OF THE RENAL PELVIS AND URETER [None]
